FAERS Safety Report 5320807-6 (Version None)
Quarter: 2007Q2

REPORT INFORMATION
  Report Type: 
  Country: None (occurrence: None)
  Receive Date: 20070509
  Receipt Date: 20070502
  Transmission Date: 20071010
  Serious: Yes (Hospitalization)
  Sender: FDA-Public Use
  Company Number: US-ABBOTT-07P-163-0363632-00

PATIENT
  Sex: Female
  Weight: 77.18 kg

DRUGS (3)
  1. DEPAKOTE [Suspect]
     Indication: CONVULSION
     Route: 048
     Dates: start: 20060401, end: 20070101
  2. DEPAKOTE [Suspect]
     Indication: AFFECTIVE DISORDER
  3. DEPAKOTE [Suspect]
     Indication: BIPOLAR DISORDER

REACTIONS (12)
  - ABNORMAL BEHAVIOUR [None]
  - AGGRESSION [None]
  - ANTICONVULSANT DRUG LEVEL INCREASED [None]
  - CONCUSSION [None]
  - CONTUSION [None]
  - DEPRESSION [None]
  - HEPATOTOXICITY [None]
  - LOSS OF CONSCIOUSNESS [None]
  - PARANOIA [None]
  - PSYCHOTIC DISORDER [None]
  - ROAD TRAFFIC ACCIDENT [None]
  - THINKING ABNORMAL [None]
